FAERS Safety Report 8596213-8 (Version None)
Quarter: 2012Q3

REPORT INFORMATION
  Report Type: 
  Country: None (occurrence: None)
  Receive Date: 20120815
  Receipt Date: 20120806
  Transmission Date: 20120928
  Serious: Yes (Other)
  Sender: FDA-Public Use
  Company Number: FR-GLAXOSMITHKLINE-B0820628A

PATIENT
  Sex: Female

DRUGS (14)
  1. EBASTINE [Suspect]
     Indication: PRURITUS
     Route: 065
  2. CYCLOPHOSPHAMIDE [Concomitant]
     Indication: BREAST CANCER
     Dosage: 8060MG CUMULATIVE DOSE
  3. LORATADINE [Suspect]
     Indication: PRURITUS
     Route: 065
  4. FLUOROURACIL [Concomitant]
     Indication: BREAST CANCER
     Dosage: 1600MG CUMULATIVE DOSE
  5. ZANTAC [Suspect]
     Indication: PRODUCT USED FOR UNKNOWN INDICATION
     Dosage: 50MG PER DAY
     Route: 065
     Dates: start: 20120626
  6. ZOFRAN [Suspect]
     Indication: PRODUCT USED FOR UNKNOWN INDICATION
     Dosage: 8MG PER DAY
     Route: 065
     Dates: start: 20120626
  7. NEULASTA [Suspect]
     Indication: PRODUCT USED FOR UNKNOWN INDICATION
     Route: 065
     Dates: start: 20120627
  8. METHOTREXATE [Concomitant]
     Indication: BREAST CANCER
     Dosage: 130MG CUMULATIVE DOSE
  9. NEXIUM [Concomitant]
     Dosage: 20MG PER DAY
  10. BEVACIZUMAB [Concomitant]
     Indication: BREAST CANCER
     Dosage: 8400MG CUMULATIVE DOSE
  11. DOXORUBICIN HCL [Concomitant]
     Indication: BREAST CANCER
     Dosage: 606MG CUMULATIVE DOSE
  12. HALAVEN [Suspect]
     Indication: PRODUCT USED FOR UNKNOWN INDICATION
     Dosage: 1.58MG PER DAY
     Route: 042
     Dates: start: 20120626
  13. SOLU-MEDROL [Suspect]
     Indication: PRODUCT USED FOR UNKNOWN INDICATION
     Route: 065
     Dates: start: 20120626
  14. ACEBUTOLOL [Concomitant]
     Dosage: 200MG TWICE PER DAY

REACTIONS (5)
  - FAECALOMA [None]
  - HERPES ZOSTER [None]
  - PRURITUS [None]
  - NAUSEA [None]
  - FATIGUE [None]
